FAERS Safety Report 9479311 (Version 1)
Quarter: 2013Q3

REPORT INFORMATION
  Report Type: Report from Study
  Country: DE (occurrence: DE)
  Receive Date: 20130827
  Receipt Date: 20130827
  Transmission Date: 20140515
  Serious: Yes (Life-Threatening, Hospitalization)
  Sender: FDA-Public Use
  Company Number: DE-009507513-2011SP058682

PATIENT
  Age: 46 Year
  Sex: Female

DRUGS (3)
  1. ETONOGESTREL (+) ETHINYL ESTRADIOL [Suspect]
     Indication: CONTRACEPTION
     Route: 067
     Dates: start: 201006, end: 201108
  2. AMLODIPINE [Concomitant]
     Indication: HYPERTENSION
  3. RAMIPRIL COMP [Concomitant]
     Indication: HYPERTENSION

REACTIONS (2)
  - Hemianopia [Not Recovered/Not Resolved]
  - Cerebral infarction [Not Recovered/Not Resolved]
